FAERS Safety Report 24884146 (Version 1)
Quarter: 2025Q1

REPORT INFORMATION
  Report Type: Spontaneous
  Country: CN (occurrence: CN)
  Receive Date: 20250124
  Receipt Date: 20250124
  Transmission Date: 20250409
  Serious: Yes (Life-Threatening, Hospitalization, Other)
  Sender: SANOFI AVENTIS
  Company Number: CN-SA-2025SA021612

PATIENT
  Age: 84 Year
  Sex: Female
  Weight: 50 kg

DRUGS (1)
  1. INSULIN GLARGINE [Suspect]
     Active Substance: INSULIN GLARGINE
     Indication: Blood glucose abnormal
     Dosage: 16U QD
     Route: 058
     Dates: start: 20241001, end: 20250113

REACTIONS (12)
  - Hypoglycaemic coma [Recovered/Resolved]
  - Pneumonitis [Recovering/Resolving]
  - Cerebral infarction [Recovering/Resolving]
  - Empty sella syndrome [Recovering/Resolving]
  - Cerebral atrophy [Recovering/Resolving]
  - Lacunar infarction [Recovering/Resolving]
  - Arteriosclerosis coronary artery [Recovering/Resolving]
  - Pulmonary mass [Recovering/Resolving]
  - Lymphadenopathy mediastinal [Recovering/Resolving]
  - Pleural thickening [Recovering/Resolving]
  - Atrioventricular block first degree [Recovering/Resolving]
  - Sinus tachycardia [Recovering/Resolving]

NARRATIVE: CASE EVENT DATE: 20250113
